FAERS Safety Report 10441409 (Version 1)
Quarter: 2014Q3

REPORT INFORMATION
  Report Type: Spontaneous
  Country: US (occurrence: US)
  Receive Date: 20140909
  Receipt Date: 20140909
  Transmission Date: 20150326
  Serious: Yes (Hospitalization, Other)
  Sender: FDA-Public Use
  Company Number: US-TEVA-506448USA

PATIENT
  Age: 25 Year
  Sex: Male

DRUGS (3)
  1. MIRTAZAPINE. [Suspect]
     Active Substance: MIRTAZAPINE
     Indication: DEPRESSION
     Route: 065
  2. PHENIBUT [Interacting]
     Active Substance: DIETARY SUPPLEMENT
     Indication: DRUG ABUSE
     Route: 048
  3. VENLAFAXINE [Interacting]
     Active Substance: VENLAFAXINE HYDROCHLORIDE
     Indication: DEPRESSION
     Route: 065

REACTIONS (5)
  - Loss of consciousness [Recovered/Resolved]
  - Drug interaction [Unknown]
  - Hyperchloraemia [Recovered/Resolved]
  - Drug abuse [Unknown]
  - Hypernatraemia [Recovered/Resolved]
